FAERS Safety Report 5897011-6 (Version None)
Quarter: 2008Q3

REPORT INFORMATION
  Report Type: 
  Country: None (occurrence: None)
  Receive Date: 20080924
  Receipt Date: 20080107
  Transmission Date: 20090109
  Serious: Yes (Other)
  Sender: FDA-Public Use
  Company Number: US-ASTRAZENECA-2008UW00509

PATIENT
  Age: 23 Year
  Sex: Male
  Weight: 72.6 kg

DRUGS (11)
  1. SEROQUEL [Suspect]
     Indication: ABNORMAL BEHAVIOUR
     Route: 048
     Dates: start: 20050101
  2. SEROQUEL [Suspect]
     Route: 048
     Dates: start: 20071101
  3. GLUCOPHAGE [Concomitant]
  4. DEPAKOTE [Concomitant]
  5. CLONIDINE [Concomitant]
  6. ENALAPRIL MALEATE [Concomitant]
  7. XANAX [Concomitant]
  8. PAXIL [Concomitant]
  9. SYNTHROID [Concomitant]
  10. REGLAN [Concomitant]
  11. HALDOL [Concomitant]

REACTIONS (3)
  - AGGRESSION [None]
  - NEUROLEPTIC MALIGNANT SYNDROME [None]
  - SLEEP DISORDER [None]
